FAERS Safety Report 7448301-7 (Version None)
Quarter: 2011Q2

REPORT INFORMATION
  Report Type: 
  Country: None (occurrence: None)
  Receive Date: 20110429
  Receipt Date: 20110420
  Transmission Date: 20111010
  Serious: Yes (Hospitalization)
  Sender: FDA-Public Use
  Company Number: US-ASTRAZENECA-2011SE22850

PATIENT
  Age: 55 Year
  Sex: Female
  Weight: 148.3 kg

DRUGS (1)
  1. CRESTOR [Suspect]
     Route: 048
     Dates: start: 20070101

REACTIONS (2)
  - WEIGHT INCREASED [None]
  - GASTRIC OPERATION [None]
